FAERS Safety Report 14366871 (Version 2)
Quarter: 2018Q3

REPORT INFORMATION
  Report Type: Spontaneous
  Country: CA (occurrence: CA)
  Receive Date: 20180109
  Receipt Date: 20180831
  Transmission Date: 20181010
  Serious: Yes (Hospitalization)
  Sender: FDA-Public Use
  Company Number: CA-PFIZER INC-2018009204

PATIENT
  Sex: Female

DRUGS (2)
  1. NORTRIPTYLINE HYDROCHLORIDE. [Suspect]
     Active Substance: NORTRIPTYLINE HYDROCHLORIDE
     Dosage: 75 MG, QD
  2. PANTOPRAZOLE [Suspect]
     Active Substance: PANTOPRAZOLE
     Dosage: UNK, QD

REACTIONS (6)
  - Fatigue [Not Recovered/Not Resolved]
  - Pouchitis [Not Recovered/Not Resolved]
  - Nausea [Not Recovered/Not Resolved]
  - Vomiting [Not Recovered/Not Resolved]
  - Abdominal discomfort [Not Recovered/Not Resolved]
  - Frequent bowel movements [Not Recovered/Not Resolved]

NARRATIVE: CASE EVENT DATE: 201703
